FAERS Safety Report 20152993 (Version 1)
Quarter: 2021Q4

REPORT INFORMATION
  Report Type: Spontaneous
  Country: FR (occurrence: None)
  Receive Date: 20211206
  Receipt Date: 20211206
  Transmission Date: 20220304
  Serious: Yes (Hospitalization, Other)
  Sender: FDA-Public Use
  Company Number: 2021A820566

PATIENT
  Age: 55 Year
  Sex: Female

DRUGS (1)
  1. ESOMEPRAZOLE [Suspect]
     Active Substance: ESOMEPRAZOLE
     Indication: Product used for unknown indication
     Dosage: 40.0MG UNKNOWN
     Route: 048
     Dates: end: 20210730

REACTIONS (5)
  - Generalised tonic-clonic seizure [Recovering/Resolving]
  - Hypocalcaemia [Recovering/Resolving]
  - Nausea [Recovering/Resolving]
  - Vomiting [Recovering/Resolving]
  - Hypomagnesaemia [Recovering/Resolving]

NARRATIVE: CASE EVENT DATE: 20210727
